FAERS Safety Report 14046299 (Version 1)
Quarter: 2017Q4

REPORT INFORMATION
  Report Type: Spontaneous
  Country: US (occurrence: US)
  Receive Date: 20171005
  Receipt Date: 20171005
  Transmission Date: 20180321
  Serious: Yes (Hospitalization, Other)
  Sender: FDA-Public Use
  Company Number: US-B.I. PHARMACEUTICALS,INC./RIDGEFIELD-2017-BI-053392

PATIENT
  Sex: Female

DRUGS (3)
  1. COMBIVENT [Suspect]
     Active Substance: ALBUTEROL SULFATE\IPRATROPIUM BROMIDE
     Indication: ASTHMA
     Dosage: FORM STRENGTH: 20 MCG / 100 MCG; ? ?ACTION(S) TAKEN WITH PRODUCT: DRUG WITHDRAWN
     Route: 055
     Dates: end: 2005
  2. COMBIVENT [Suspect]
     Active Substance: ALBUTEROL SULFATE\IPRATROPIUM BROMIDE
     Dosage: FORM STRENGTH: 20 MCG / 100 MCG; ? THERAPY START DATE --2017 ?ACTION(S) TAKEN WITH PRODUCT: DOSE NOT
     Route: 055
  3. XANEX [Concomitant]
     Indication: NERVE INJURY
     Route: 065

REACTIONS (6)
  - Weight decreased [Not Recovered/Not Resolved]
  - Blindness [Not Recovered/Not Resolved]
  - Breast cancer [Unknown]
  - Staphylococcal infection [Recovered/Resolved]
  - Colon cancer [Unknown]
  - Off label use [Unknown]

NARRATIVE: CASE EVENT DATE: 2002
